FAERS Safety Report 4431301-9 (Version None)
Quarter: 2004Q3

REPORT INFORMATION
  Report Type: 
  Country: None (occurrence: None)
  Receive Date: 20040823
  Receipt Date: 20040823
  Transmission Date: 20050211
  Serious: No
  Sender: FDA-Public Use
  Company Number: None

PATIENT

DRUGS (3)
  1. ZELNORM [Suspect]
     Indication: CONSTIPATION
     Dosage: 2 MG BID ORAL
     Route: 048
  2. ZELNORM [Suspect]
     Indication: IRRITABLE BOWEL SYNDROME
     Dosage: 2 MG BID ORAL
     Route: 048
  3. ZELNORM [Suspect]
     Dosage: 6 MG BID ORL
     Route: 048

REACTIONS (1)
  - NO ADVERSE DRUG EFFECT [None]
